FAERS Safety Report 25008264 (Version 1)
Quarter: 2025Q1

REPORT INFORMATION
  Report Type: Spontaneous
  Country: US (occurrence: None)
  Receive Date: 20250224
  Receipt Date: 20250224
  Transmission Date: 20250409
  Serious: No
  Sender: FDA-CTU
  Company Number: None

PATIENT
  Age: 64 Year
  Sex: Male

DRUGS (1)
  1. LIFILEUCEL [Suspect]
     Active Substance: LIFILEUCEL

REACTIONS (3)
  - Cerebral haemorrhage [None]
  - Immune effector cell-associated neurotoxicity syndrome [None]
  - Metastases to central nervous system [None]

NARRATIVE: CASE EVENT DATE: 20250101
